FAERS Safety Report 19387340 (Version 1)
Quarter: 2021Q2

REPORT INFORMATION
  Report Type: Spontaneous
  Country: US (occurrence: US)
  Receive Date: 20210607
  Receipt Date: 20210607
  Transmission Date: 20210717
  Serious: No
  Sender: FDA-Public Use
  Company Number: US-PERRIGO-20US016811

PATIENT
  Age: 76 Year
  Sex: Female
  Weight: 54.88 kg

DRUGS (2)
  1. NITRO                              /00003201/ [Concomitant]
     Active Substance: NITROGLYCERIN
     Indication: CARDIAC DISORDER
     Dosage: UNK
     Route: 065
  2. MINOXIDIL. [Suspect]
     Active Substance: MINOXIDIL
     Indication: ALOPECIA
     Dosage: UNKNOWN, QD
     Route: 061
     Dates: start: 20201119, end: 20201120

REACTIONS (3)
  - Incorrect dose administered [Recovered/Resolved]
  - Product administered at inappropriate site [Recovered/Resolved]
  - Wrong technique in product usage process [Recovered/Resolved]

NARRATIVE: CASE EVENT DATE: 20201119
